FAERS Safety Report 9905507 (Version 3)
Quarter: 2014Q1

REPORT INFORMATION
  Report Type: Spontaneous
  Country: IL (occurrence: IL)
  Receive Date: 20140218
  Receipt Date: 20140325
  Transmission Date: 20141002
  Serious: Yes (Hospitalization)
  Sender: FDA-Public Use
  Company Number: IL-AMGEN-ISRSP2014010595

PATIENT
  Age: 80 Year
  Sex: Female
  Weight: 56 kg

DRUGS (3)
  1. NPLATE [Suspect]
     Indication: IMMUNE THROMBOCYTOPENIC PURPURA
     Dosage: UNK
     Route: 058
     Dates: start: 20120329
  2. INSULIN [Concomitant]
     Indication: DIABETES MELLITUS
     Dosage: UNK
     Route: 065
  3. LANTUS [Concomitant]
     Dosage: UNK
     Route: 065

REACTIONS (2)
  - Platelet count decreased [Recovered/Resolved]
  - Haematoma [Unknown]
